FAERS Safety Report 12438019 (Version 1)
Quarter: 2016Q2

REPORT INFORMATION
  Report Type: Spontaneous
  Country: US (occurrence: None)
  Receive Date: 20160603
  Receipt Date: 20160603
  Transmission Date: 20160815
  Serious: No
  Sender: FDA-Public Use
  Company Number: None

PATIENT
  Age: 56 Year
  Sex: Female

DRUGS (1)
  1. NEULASTA [Suspect]
     Active Substance: PEGFILGRASTIM
     Indication: WHITE BLOOD CELL COUNT
     Route: 058
     Dates: start: 20160531, end: 20160531

REACTIONS (7)
  - Musculoskeletal disorder [None]
  - Hypersensitivity [None]
  - Abasia [None]
  - Hypophagia [None]
  - Muscle spasms [None]
  - Abdominal distension [None]
  - Spinal disorder [None]

NARRATIVE: CASE EVENT DATE: 20160531
